FAERS Safety Report 10545358 (Version 2)
Quarter: 2014Q4

REPORT INFORMATION
  Report Type: Spontaneous
  Country: US (occurrence: US)
  Receive Date: 20141027
  Receipt Date: 20141028
  Transmission Date: 20150529
  Serious: No
  Sender: FDA-Public Use
  Company Number: US-PFIZER INC-2014290124

PATIENT
  Age: 60 Year
  Sex: Female
  Weight: 81 kg

DRUGS (2)
  1. NEURONTIN [Suspect]
     Active Substance: GABAPENTIN
     Dosage: 900 MG, 3X/DAY
  2. KEPPRA [Concomitant]
     Active Substance: LEVETIRACETAM
     Dosage: UNK

REACTIONS (12)
  - Urticaria [Unknown]
  - Memory impairment [Unknown]
  - Diarrhoea [Unknown]
  - Crying [Unknown]
  - Urinary tract infection [Unknown]
  - Impaired work ability [Unknown]
  - Dizziness [Unknown]
  - Constipation [Unknown]
  - Insomnia [Unknown]
  - Nausea [Unknown]
  - Fall [Unknown]
  - Micturition disorder [Unknown]
